FAERS Safety Report 18975184 (Version 4)
Quarter: 2023Q2

REPORT INFORMATION
  Report Type: Spontaneous
  Country: US (occurrence: US)
  Receive Date: 20210305
  Receipt Date: 20230519
  Transmission Date: 20230722
  Serious: Yes (Hospitalization, Disabling, Other)
  Sender: FDA-Public Use
  Company Number: US-ORGANON-O2103USA000652

PATIENT
  Sex: Male
  Weight: 96.62 kg

DRUGS (3)
  1. SINGULAIR [Suspect]
     Active Substance: MONTELUKAST SODIUM
     Dosage: UNK
     Route: 048
     Dates: start: 1998, end: 2011
  2. SINGULAIR [Suspect]
     Active Substance: MONTELUKAST SODIUM
     Indication: Pharyngitis
     Dosage: UNK
     Route: 048
     Dates: start: 20030923
  3. TRILEPTAL [Concomitant]
     Active Substance: OXCARBAZEPINE
     Indication: Attention deficit hyperactivity disorder
     Dosage: 150 MG QHS

REACTIONS (47)
  - Suicide attempt [Not Recovered/Not Resolved]
  - Neuropsychiatric symptoms [Not Recovered/Not Resolved]
  - Bipolar I disorder [Recovering/Resolving]
  - Haematochezia [Unknown]
  - Haematemesis [Unknown]
  - Loss of consciousness [Unknown]
  - Tic [Not Recovered/Not Resolved]
  - Suicidal ideation [Not Recovered/Not Resolved]
  - Tremor [Not Recovered/Not Resolved]
  - Depression [Not Recovered/Not Resolved]
  - Intentional self-injury [Unknown]
  - Intentional self-injury [Unknown]
  - Intentional self-injury [Unknown]
  - Affect lability [Unknown]
  - Asthma [Unknown]
  - Rhinitis allergic [Unknown]
  - Adjustment disorder with depressed mood [Unknown]
  - Helicobacter infection [Unknown]
  - Gastritis [Unknown]
  - Emotional disorder of childhood [Unknown]
  - Ligament sprain [Unknown]
  - Viraemia [Unknown]
  - Tension headache [Unknown]
  - Muscle strain [Unknown]
  - Grunting [Unknown]
  - School refusal [Unknown]
  - Fear [Unknown]
  - Melanocytic naevus [Unknown]
  - Fall [Unknown]
  - Heart rate increased [Unknown]
  - Mood swings [Unknown]
  - Acute sinusitis [Unknown]
  - Upper respiratory tract infection [Unknown]
  - Anxiety [Unknown]
  - Epistaxis [Unknown]
  - Fatigue [Unknown]
  - Headache [Unknown]
  - Cough [Unknown]
  - Anger [Unknown]
  - Aggression [Unknown]
  - Irritability [Unknown]
  - Hypersensitivity [Unknown]
  - Nightmare [Unknown]
  - Insomnia [Unknown]
  - Product use in unapproved indication [Unknown]
  - Feelings of worthlessness [Unknown]
  - Feeling abnormal [Unknown]

NARRATIVE: CASE EVENT DATE: 20000101
